FAERS Safety Report 5355268-4 (Version None)
Quarter: 2007Q2

REPORT INFORMATION
  Report Type: 
  Country: None (occurrence: None)
  Receive Date: 20070525
  Receipt Date: 20061016
  Transmission Date: 20071010
  Serious: Yes (Hospitalization)
  Sender: FDA-Public Use
  Company Number: 2006SP003747

PATIENT
  Age: 25 Month
  Sex: Male
  Weight: 11 kg

DRUGS (1)
  1. XOPENEX [Suspect]
     Indication: BRONCHITIS
     Dosage: 0.63 MG/3ML;1X;INHALATION
     Route: 055
     Dates: start: 20061003, end: 20061003

REACTIONS (1)
  - SUPRAVENTRICULAR TACHYCARDIA [None]
